FAERS Safety Report 10171876 (Version 2)
Quarter: 2014Q2

REPORT INFORMATION
  Report Type: Spontaneous
  Country: NG (occurrence: None)
  Receive Date: 20140512
  Receipt Date: 20140612
  Transmission Date: 20141212
  Serious: Yes (Other)
  Sender: FDA-Public Use
  Company Number: DEP_02095_2014

PATIENT
  Age: 42 Year
  Sex: Female

DRUGS (5)
  1. DICLOFENAC [Suspect]
     Indication: PYREXIA
     Dosage: (DF)
     Route: 048
     Dates: start: 20130419, end: 20130419
  2. ANTIRETROVIRAL THERAPY [Concomitant]
  3. CEFTRIAXONE [Concomitant]
  4. ZIDOVUDINE [Concomitant]
  5. NEVIRAPINE [Concomitant]

REACTIONS (1)
  - Generalised tonic-clonic seizure [None]
